FAERS Safety Report 24628247 (Version 1)
Quarter: 2024Q4

REPORT INFORMATION
  Report Type: Spontaneous
  Country: US (occurrence: US)
  Receive Date: 20241117
  Receipt Date: 20241117
  Transmission Date: 20250114
  Serious: Yes (Other)
  Sender: AUROBINDO
  Company Number: US-AUROBINDO-AUR-APL-2024-055622

PATIENT
  Age: 49 Year
  Sex: Female

DRUGS (7)
  1. CYCLOPHOSPHAMIDE [Suspect]
     Active Substance: CYCLOPHOSPHAMIDE
     Indication: Diffuse large B-cell lymphoma
  2. PREDNISONE [Suspect]
     Active Substance: PREDNISONE
     Indication: Diffuse large B-cell lymphoma
     Dosage: UNK
     Route: 065
  3. DOXORUBICIN [Suspect]
     Active Substance: DOXORUBICIN
     Indication: Diffuse large B-cell lymphoma
     Dosage: UNK
     Route: 065
  4. VINCRISTINE [Suspect]
     Active Substance: VINCRISTINE
     Indication: Diffuse large B-cell lymphoma
     Route: 065
  5. RITUXIMAB [Suspect]
     Active Substance: RITUXIMAB
     Indication: Diffuse large B-cell lymphoma
     Dosage: UNK
     Route: 065
  6. LANADELUMAB [Concomitant]
     Active Substance: LANADELUMAB
     Indication: Hereditary angioedema with C1 esterase inhibitor deficiency
     Dosage: EVERY 2 WEEK
     Route: 065
  7. ICATIBANT [Concomitant]
     Active Substance: ICATIBANT ACETATE
     Indication: Hereditary angioedema with C1 esterase inhibitor deficiency

REACTIONS (2)
  - Hereditary angioedema with C1 esterase inhibitor deficiency [Unknown]
  - Angioedema [Recovered/Resolved]
